FAERS Safety Report 5106197-2 (Version None)
Quarter: 2006Q3

REPORT INFORMATION
  Report Type: 
  Country: None (occurrence: None)
  Receive Date: 20060918
  Receipt Date: 20060807
  Transmission Date: 20061208
  Serious: Yes (Hospitalization, Other)
  Sender: FDA-Public Use
  Company Number: FR-BRISTOL-MYERS SQUIBB COMPANY-13469002

PATIENT
  Age: 79 Year
  Sex: Male

DRUGS (6)
  1. COUMADIN [Suspect]
     Route: 048
  2. GLUCOPHAGE [Suspect]
     Route: 048
     Dates: end: 20060720
  3. DIGOXIN [Suspect]
     Route: 048
  4. LASILIX [Suspect]
  5. LODALES [Suspect]
     Dates: end: 20060720
  6. COZAAR [Suspect]

REACTIONS (1)
  - ACUTE LEUKAEMIA [None]
